FAERS Safety Report 13826872 (Version 1)
Quarter: 2017Q3

REPORT INFORMATION
  Report Type: Spontaneous
  Country: US (occurrence: US)
  Receive Date: 20170802
  Receipt Date: 20170802
  Transmission Date: 20171127
  Serious: No
  Sender: FDA-Public Use
  Company Number: US-ROCHE-657583

PATIENT
  Age: 75 Year
  Sex: Female

DRUGS (6)
  1. CALCIUM [Concomitant]
     Active Substance: CALCIUM
     Route: 065
  2. BONIVA [Suspect]
     Active Substance: IBANDRONATE SODIUM
     Indication: OSTEOPENIA
     Route: 048
  3. RAMIPRIL. [Concomitant]
     Active Substance: RAMIPRIL
     Route: 065
  4. VITAMIN [Concomitant]
     Active Substance: VITAMINS
     Route: 065
  5. NIASPAN [Concomitant]
     Active Substance: NIACIN
     Route: 065
  6. LUMIGAN [Concomitant]
     Active Substance: BIMATOPROST
     Route: 065

REACTIONS (1)
  - Bone density decreased [Unknown]
